FAERS Safety Report 9852764 (Version 1)
Quarter: 2014Q1

REPORT INFORMATION
  Report Type: Spontaneous
  Country: US (occurrence: US)
  Receive Date: 20140129
  Receipt Date: 20140129
  Transmission Date: 20141002
  Serious: No
  Sender: FDA-Public Use
  Company Number: US-009507513-1401USA009785

PATIENT
  Age: 22 Year
  Sex: Female
  Weight: 65.76 kg

DRUGS (1)
  1. IMPLANON [Suspect]
     Indication: CONTRACEPTION
     Dosage: 68, LEFT ARM
     Route: 059
     Dates: start: 201102

REACTIONS (3)
  - Emotional disorder [Not Recovered/Not Resolved]
  - Medical device complication [Unknown]
  - Device dislocation [Unknown]
